FAERS Safety Report 18964011 (Version 2)
Quarter: 2021Q1

REPORT INFORMATION
  Report Type: Other
  Country: US (occurrence: US)
  Receive Date: 20210303
  Receipt Date: 20210318
  Transmission Date: 20210420
  Serious: Yes (Hospitalization)
  Sender: FDA-Public Use
  Company Number: US-ROCHE-2773456

PATIENT
  Age: 50 Year
  Sex: Female
  Weight: 59.93 kg

DRUGS (3)
  1. OCREVUS [Suspect]
     Active Substance: OCRELIZUMAB
     Indication: RELAPSING MULTIPLE SCLEROSIS
     Dosage: 300 MG ON DAY 1 AND 15 THEN 600 MG ONCE IN 6 MONTHS?ON 02/OCT/2017, 09/MAR/2018, 24/OCT/2018, 30/SEP
     Route: 042
     Dates: start: 20170918, end: 20200619
  2. OCREVUS [Suspect]
     Active Substance: OCRELIZUMAB
     Route: 042
     Dates: start: 20180902
  3. OCREVUS [Suspect]
     Active Substance: OCRELIZUMAB
     Route: 042
     Dates: start: 20170918

REACTIONS (4)
  - Medical device site erosion [Recovering/Resolving]
  - Abscess [Recovering/Resolving]
  - Sepsis [Recovering/Resolving]
  - COVID-19 [Unknown]

NARRATIVE: CASE EVENT DATE: 202012
